FAERS Safety Report 11953949 (Version 1)
Quarter: 2016Q1

REPORT INFORMATION
  Report Type: Not Available
  Country: KR (occurrence: KR)
  Receive Date: 20160125
  Receipt Date: 20160125
  Transmission Date: 20160526
  Serious: Yes (Other)
  Sender: FDA-Public Use
  Company Number: KR-ANIPHARMA-2016-KR-000002

PATIENT
  Age: 76 Year
  Sex: Female

DRUGS (1)
  1. ALPRAZOLAM (NON-SPECIFIC) [Suspect]
     Active Substance: ALPRAZOLAM
     Dosage: 0.25 MG

REACTIONS (1)
  - Parkinsonism [Unknown]
